FAERS Safety Report 5873668-0 (Version None)
Quarter: 2008Q3

REPORT INFORMATION
  Report Type: 
  Country: None (occurrence: None)
  Receive Date: 20080908
  Receipt Date: 20080902
  Transmission Date: 20090109
  Serious: Yes (Other)
  Sender: FDA-Public Use
  Company Number: A0746224A

PATIENT
  Sex: Female

DRUGS (3)
  1. ALBUTEROL [Suspect]
  2. FLOVENT [Concomitant]
     Indication: ASTHMA
     Route: 055
  3. SEREVENT [Concomitant]
     Route: 055

REACTIONS (6)
  - DRUG ABUSE [None]
  - DRUG DEPENDENCE [None]
  - DYSPNOEA [None]
  - GENERAL PHYSICAL HEALTH DETERIORATION [None]
  - WEIGHT INCREASED [None]
  - WHEEZING [None]
